FAERS Safety Report 7769774-6 (Version None)
Quarter: 2011Q3

REPORT INFORMATION
  Report Type: 
  Country: None (occurrence: None)
  Receive Date: 20110920
  Receipt Date: 20110909
  Transmission Date: 20111222
  Serious: Yes (Other)
  Sender: FDA-Public Use
  Company Number: 2011MA013590

PATIENT
  Age: 30 Year
  Sex: Female

DRUGS (4)
  1. PROSTIN E2 [Concomitant]
  2. MEPERIDINE HYDROCHLORIDE [Suspect]
     Indication: PAIN
     Dosage: 100 MG;ONCE;IM
     Route: 030
     Dates: start: 20110609, end: 20110609
  3. METOCLOPRAMIDE [Suspect]
     Indication: ANTIEMETIC SUPPORTIVE CARE
     Dosage: 10 MG;1X;IM
     Route: 030
     Dates: start: 20110609, end: 20110609
  4. ACETAMINOPHEN AND CODEINE PHOSPHATE [Concomitant]

REACTIONS (6)
  - PSYCHOTIC DISORDER [None]
  - MATERNAL EXPOSURE DURING PREGNANCY [None]
  - SCREAMING [None]
  - CAESAREAN SECTION [None]
  - AGGRESSION [None]
  - ABNORMAL BEHAVIOUR [None]
